FAERS Safety Report 20178266 (Version 2)
Quarter: 2021Q4

REPORT INFORMATION
  Report Type: Report from Study
  Country: CR (occurrence: CR)
  Receive Date: 20211213
  Receipt Date: 20211227
  Transmission Date: 20220303
  Serious: Yes (Hospitalization, Other)
  Sender: FDA-Public Use
  Company Number: CR-ABBVIE-21K-039-4191930-00

PATIENT
  Age: 63 Year
  Sex: Male
  Weight: 72 kg

DRUGS (1)
  1. HUMIRA [Suspect]
     Active Substance: ADALIMUMAB
     Indication: Rheumatoid arthritis
     Route: 058
     Dates: start: 20070330, end: 20211014

REACTIONS (3)
  - Cough [Recovering/Resolving]
  - Renal neoplasm [Recovering/Resolving]
  - Lung infiltration [Recovering/Resolving]

NARRATIVE: CASE EVENT DATE: 20211101
